FAERS Safety Report 4302708-5 (Version None)
Quarter: 2004Q1

REPORT INFORMATION
  Report Type: 
  Country: None (occurrence: None)
  Receive Date: 20040224
  Receipt Date: 20040113
  Transmission Date: 20041129
  Serious: Yes (Other)
  Sender: FDA-Public Use
  Company Number: PHBS2004CO00779

PATIENT
  Age: 40 Year
  Sex: Male

DRUGS (4)
  1. ZELMAC [Suspect]
     Indication: IRRITABLE BOWEL SYNDROME
     Dosage: 6 MG, BID
     Route: 048
     Dates: start: 20031222, end: 20031230
  2. OMEPRAZOLE [Concomitant]
  3. TRIMEBUTINE [Concomitant]
  4. SPASMOMEN [Concomitant]

REACTIONS (7)
  - ANXIETY [None]
  - ERYTHEMA [None]
  - HAEMATOCHEZIA [None]
  - HAEMORRHAGE [None]
  - HYPERSENSITIVITY [None]
  - PRURITUS [None]
  - SKIN DISORDER [None]
